FAERS Safety Report 7997471-0 (Version None)
Quarter: 2011Q4

REPORT INFORMATION
  Report Type: 
  Country: None (occurrence: None)
  Receive Date: 20111221
  Receipt Date: 20111221
  Transmission Date: 20120403
  Serious: No
  Sender: FDA-Public Use
  Company Number: None

PATIENT
  Sex: Female
  Weight: 66.224 kg

DRUGS (1)
  1. LYRICA [Suspect]
     Indication: PRODUCT USED FOR UNKNOWN INDICATION
     Dates: start: 20111206, end: 20111215

REACTIONS (5)
  - SYNCOPE [None]
  - HEADACHE [None]
  - HEAD INJURY [None]
  - ALCOHOL USE [None]
  - HAEMORRHAGE [None]
